FAERS Safety Report 17824865 (Version 1)
Quarter: 2020Q2

REPORT INFORMATION
  Report Type: Spontaneous
  Country: FR (occurrence: FR)
  Receive Date: 20200526
  Receipt Date: 20200526
  Transmission Date: 20200714
  Serious: Yes (Life-Threatening, Hospitalization)
  Sender: FDA-Public Use
  Company Number: FR-MYLANLABS-2020M1052066

PATIENT
  Age: 51 Year
  Sex: Male

DRUGS (3)
  1. AMLODIPINE [Suspect]
     Active Substance: AMLODIPINE BESYLATE
     Indication: HYPERTENSION
     Dosage: 450 MILLIGRAM 45 TABLETS OF 10MG
     Route: 048
  2. RAMIPRIL. [Suspect]
     Active Substance: RAMIPRIL
     Indication: HYPERTENSION
     Dosage: 150 MILLIGRAM 15 TABLETS OF 10MG
     Route: 048
  3. BISOPROLOL [Suspect]
     Active Substance: BISOPROLOL
     Indication: HYPERTENSION
     Dosage: 160 MILLIGRAM 16 TABLETS OF 10MG
     Route: 048

REACTIONS (6)
  - Pneumonia aspiration [Unknown]
  - Shock [Recovered/Resolved]
  - Toxicity to various agents [Recovered/Resolved]
  - Sinus bradycardia [Recovered/Resolved]
  - Renal failure [Unknown]
  - Intentional overdose [Recovered/Resolved]
